FAERS Safety Report 5528153-2 (Version None)
Quarter: 2007Q4

REPORT INFORMATION
  Report Type: 
  Country: None (occurrence: None)
  Receive Date: 20071128
  Receipt Date: 20071116
  Transmission Date: 20080405
  Serious: Yes (Other)
  Sender: FDA-Public Use
  Company Number: US-PFIZER INC-2007064451

PATIENT
  Sex: Male
  Weight: 65.8 kg

DRUGS (3)
  1. CHANTIX [Suspect]
     Indication: SMOKING CESSATION THERAPY
  2. ZOLOFT [Interacting]
     Indication: DEPRESSION
  3. XANAX [Interacting]
     Indication: SLEEP DISORDER

REACTIONS (4)
  - CHORIORETINOPATHY [None]
  - DRUG INTERACTION [None]
  - DYSGEUSIA [None]
  - VISION BLURRED [None]
